FAERS Safety Report 4973956-6 (Version None)
Quarter: 2006Q2

REPORT INFORMATION
  Report Type: 
  Country: None (occurrence: None)
  Receive Date: 20060410
  Receipt Date: 20060322
  Transmission Date: 20061013
  Serious: Yes (Hospitalization, Other)
  Sender: FDA-Public Use
  Company Number: US200603005749

PATIENT
  Age: 44 Year
  Sex: Male

DRUGS (2)
  1. HUMALOG PEN [Suspect]
     Indication: DIABETES MELLITUS
     Dosage: 15 U, 2/D,
     Dates: start: 20030101
  2. LANTUS [Concomitant]

REACTIONS (7)
  - ANGINA PECTORIS [None]
  - BLOOD GLUCOSE INCREASED [None]
  - CHEST DISCOMFORT [None]
  - CORONARY ARTERY DISEASE [None]
  - CORONARY ARTERY OCCLUSION [None]
  - DIABETES MELLITUS INADEQUATE CONTROL [None]
  - PHARMACEUTICAL PRODUCT COMPLAINT [None]
